FAERS Safety Report 20558514 (Version 1)
Quarter: 2022Q1

REPORT INFORMATION
  Report Type: Report from Study
  Country: TH (occurrence: TH)
  Receive Date: 20220307
  Receipt Date: 20220307
  Transmission Date: 20220424
  Serious: Yes (Death, Other)
  Sender: FDA-Public Use
  Company Number: TH-BRISTOL-MYERS SQUIBB COMPANY-BMS-2022-033807

PATIENT
  Age: 62 Year
  Sex: Female

DRUGS (2)
  1. APIXABAN [Suspect]
     Active Substance: APIXABAN
     Indication: Embolism venous
     Dosage: 10 MILLIGRAM, BID FOR 1ST WEEK
     Dates: start: 20210607, end: 202106
  2. APIXABAN [Suspect]
     Active Substance: APIXABAN
     Dosage: 5 MILLIGRAM, BID FOR FOLLOWING WEEKS
     Route: 048
     Dates: start: 202106

REACTIONS (1)
  - Death [Fatal]
